FAERS Safety Report 5155559-6 (Version None)
Quarter: 2006Q4

REPORT INFORMATION
  Report Type: 
  Country: None (occurrence: None)
  Receive Date: 20061114
  Receipt Date: 20061106
  Transmission Date: 20070319
  Serious: Yes (Other)
  Sender: FDA-Public Use
  Company Number: US-2006-034534

PATIENT
  Sex: Female

DRUGS (1)
  1. CLIMARA [Suspect]
     Dosage: 0.06 MG/D, CONT, TRANSDERMAL; 0.1 MG/D, CONT, TRANSDERMAL
     Route: 062

REACTIONS (3)
  - ALOPECIA [None]
  - ANGINA PECTORIS [None]
  - BLOOD IRON ABNORMAL [None]
